FAERS Safety Report 22660772 (Version 1)
Quarter: 2023Q2

REPORT INFORMATION
  Report Type: Spontaneous
  Country: GB (occurrence: GB)
  Receive Date: 20230630
  Receipt Date: 20230630
  Transmission Date: 20230722
  Serious: No
  Sender: FDA-Public Use
  Company Number: GB-JAZZ PHARMACEUTICALS-2023-GB-004636

PATIENT
  Age: 14 Year
  Sex: Male

DRUGS (6)
  1. CANNABIDIOL [Suspect]
     Active Substance: CANNABIDIOL
     Indication: Product used for unknown indication
     Dosage: 15 MILLIGRAM/KILOGRAM, QD
  2. LORAZEPAM [Concomitant]
     Active Substance: LORAZEPAM
  3. CLOBAZAM [Concomitant]
     Active Substance: CLOBAZAM
  4. LACOSAMIDE [Concomitant]
     Active Substance: LACOSAMIDE
  5. LEVETIRACETAM [Concomitant]
     Active Substance: LEVETIRACETAM
  6. PHENOBARBITAL [Concomitant]
     Active Substance: PHENOBARBITAL

REACTIONS (4)
  - Gamma-glutamyltransferase increased [Recovering/Resolving]
  - Alanine aminotransferase increased [Recovering/Resolving]
  - Aspartate aminotransferase increased [Recovering/Resolving]
  - Off label use [Unknown]

NARRATIVE: CASE EVENT DATE: 20230209
